FAERS Safety Report 15258720 (Version 1)
Quarter: 2018Q3

REPORT INFORMATION
  Report Type: Spontaneous
  Country: US (occurrence: US)
  Receive Date: 20180809
  Receipt Date: 20180809
  Transmission Date: 20181010
  Serious: No
  Sender: FDA-Public Use
  Company Number: US-TEVA-2018-US-920283

PATIENT
  Sex: Female

DRUGS (3)
  1. FLUOCINONIDE. [Suspect]
     Active Substance: FLUOCINONIDE
     Indication: PRURITUS
     Route: 065
     Dates: start: 20180614
  2. FLUOCINONIDE. [Suspect]
     Active Substance: FLUOCINONIDE
     Indication: INFLAMMATION
  3. FLUOCINOLONE [Concomitant]
     Active Substance: FLUOCINOLONE
     Indication: PRURITUS
     Route: 065

REACTIONS (2)
  - Drug ineffective [Unknown]
  - Expired product administered [Unknown]
